FAERS Safety Report 19422123 (Version 2)
Quarter: 2021Q3

REPORT INFORMATION
  Report Type: Report from Study
  Country: None (occurrence: US)
  Receive Date: 20210616
  Receipt Date: 20210708
  Transmission Date: 20211014
  Serious: Yes (Hospitalization)
  Sender: FDA-Public Use
  Company Number: US-ULTRAGENYX PHARMACEUTICAL INC.-US-UGNX-21-00163

PATIENT
  Age: 1 Year
  Sex: Female

DRUGS (1)
  1. DOJOLVI [Suspect]
     Active Substance: TRIHEPTANOIN
     Indication: LONG-CHAIN ACYL-COENZYME A DEHYDROGENASE DEFICIENCY
     Route: 048
     Dates: start: 20200929

REACTIONS (10)
  - Blood creatine phosphokinase increased [Recovered/Resolved]
  - Proteinuria [Recovered/Resolved]
  - Food refusal [Recovered/Resolved]
  - Pyrexia [Recovered/Resolved]
  - Hand-foot-and-mouth disease [Recovered/Resolved]
  - Lethargy [Recovered/Resolved]
  - Myoglobinuria [Recovered/Resolved]
  - Reaction to previous exposure to any vaccine [Recovered/Resolved]
  - Vomiting [Recovered/Resolved]
  - Rhinovirus infection [Recovered/Resolved]

NARRATIVE: CASE EVENT DATE: 20210528
